FAERS Safety Report 5497985-1 (Version None)
Quarter: 2007Q4

REPORT INFORMATION
  Report Type: 
  Country: None (occurrence: None)
  Receive Date: 20071025
  Receipt Date: 20071017
  Transmission Date: 20080405
  Serious: Yes (Death, Hospitalization, Other)
  Sender: FDA-Public Use
  Company Number: US-PFIZER INC-2006119027

PATIENT
  Sex: Female
  Weight: 98.9 kg

DRUGS (2)
  1. CELEBREX [Suspect]
     Indication: PAIN
     Dates: start: 20010620, end: 20031229
  2. VIOXX [Suspect]
     Dates: start: 20000201, end: 20010601

REACTIONS (2)
  - ACUTE CORONARY SYNDROME [None]
  - HYPERTENSION [None]
